FAERS Safety Report 9009883 (Version 3)
Quarter: 2013Q2

REPORT INFORMATION
  Report Type: Spontaneous
  Country: US (occurrence: US)
  Receive Date: 20130110
  Receipt Date: 20130416
  Transmission Date: 20140414
  Serious: No
  Sender: FDA-Public Use
  Company Number: US-009507513-1301USA002663

PATIENT
  Age: 17 Year
  Sex: Female
  Weight: 74.38 kg

DRUGS (1)
  1. NEXPLANON [Suspect]
     Indication: CONTRACEPTION
     Dosage: UNK
     Route: 059
     Dates: start: 20121212

REACTIONS (4)
  - Implant site bruising [Recovering/Resolving]
  - Device dislocation [Unknown]
  - Device breakage [Unknown]
  - Product quality issue [Unknown]
